FAERS Safety Report 25898966 (Version 1)
Quarter: 2025Q4

REPORT INFORMATION
  Report Type: Report from Study
  Country: IN (occurrence: IN)
  Receive Date: 20251009
  Receipt Date: 20251009
  Transmission Date: 20260118
  Serious: Yes (Other)
  Sender: ALEXION PHARMACEUTICALS
  Company Number: IN-AstraZeneca-CH-00964659A

PATIENT
  Sex: Male
  Weight: 60 kg

DRUGS (1)
  1. DURVALUMAB [Suspect]
     Active Substance: DURVALUMAB
     Indication: Biliary cancer metastatic

REACTIONS (7)
  - Jaundice [Unknown]
  - Hepatic mass [Unknown]
  - Intestinal mass [Unknown]
  - Decreased appetite [Unknown]
  - Abdominal distension [Unknown]
  - Ascites [Unknown]
  - Pulmonary oedema [Unknown]
